FAERS Safety Report 6687941-X (Version None)
Quarter: 2010Q2

REPORT INFORMATION
  Report Type: 
  Country: None (occurrence: None)
  Receive Date: 20100420
  Receipt Date: 20100413
  Transmission Date: 20101027
  Serious: Yes (Other)
  Sender: FDA-Public Use
  Company Number: BE-SANOFI-AVENTIS-2010SA021696

PATIENT
  Age: 68 Year
  Sex: Male

DRUGS (5)
  1. DOCETAXEL [Suspect]
     Indication: PROSTATE CANCER METASTATIC
     Route: 041
     Dates: start: 20100406, end: 20100406
  2. NSAID'S [Concomitant]
  3. DAFALGAN [Concomitant]
  4. PREDNISONE [Concomitant]
  5. MEDROL [Concomitant]
     Indication: PROPHYLAXIS

REACTIONS (1)
  - THROMBOTIC THROMBOCYTOPENIC PURPURA [None]
